FAERS Safety Report 14438065 (Version 1)
Quarter: 2018Q1

REPORT INFORMATION
  Report Type: Spontaneous
  Country: PR (occurrence: PR)
  Receive Date: 20180125
  Receipt Date: 20180125
  Transmission Date: 20180509
  Serious: No
  Sender: FDA-Public Use
  Company Number: PR-ABBVIE-17P-131-1888670-00

PATIENT
  Sex: Female

DRUGS (1)
  1. HUMIRA [Suspect]
     Active Substance: ADALIMUMAB
     Indication: PSORIATIC ARTHROPATHY
     Route: 058

REACTIONS (5)
  - Aortic arteriosclerosis [Unknown]
  - Bronchitis [Recovered/Resolved]
  - Dyspnoea [Unknown]
  - Bundle branch block left [Unknown]
  - Cardiomegaly [Unknown]

NARRATIVE: CASE EVENT DATE: 2015
